FAERS Safety Report 22114466 (Version 1)
Quarter: 2023Q1

REPORT INFORMATION
  Report Type: Spontaneous
  Country: US (occurrence: US)
  Receive Date: 20230320
  Receipt Date: 20230320
  Transmission Date: 20230418
  Serious: Yes (Hospitalization, Other)
  Sender: FDA-Public Use
  Company Number: US-GSK-US2023AMR040327

PATIENT

DRUGS (1)
  1. BENLYSTA [Suspect]
     Active Substance: BELIMUMAB
     Indication: Systemic lupus erythematosus
     Dosage: 200 MG, WE
     Route: 058

REACTIONS (6)
  - Psychotic disorder [Not Recovered/Not Resolved]
  - Neuropsychiatric lupus [Unknown]
  - Systemic lupus erythematosus [Unknown]
  - Arthralgia [Unknown]
  - Skin reaction [Unknown]
  - Disease progression [Unknown]
